FAERS Safety Report 8371354-9 (Version None)
Quarter: 2012Q2

REPORT INFORMATION
  Report Type: 
  Country: None (occurrence: None)
  Receive Date: 20120518
  Receipt Date: 20120507
  Transmission Date: 20120825
  Serious: No
  Sender: FDA-Public Use
  Company Number: DE-ELI_LILLY_AND_COMPANY-DE201111004446

PATIENT
  Age: 16 Year
  Sex: Male
  Weight: 63.6 kg

DRUGS (1)
  1. ZYPREXA [Suspect]
     Indication: PSYCHOTIC DISORDER
     Dosage: 12.5 MG, UNK
     Route: 048
     Dates: start: 20110923

REACTIONS (4)
  - PARKINSONISM [None]
  - AKATHISIA [None]
  - LYMPHOPENIA [None]
  - NEUTROPENIA [None]
